FAERS Safety Report 6269362-7 (Version None)
Quarter: 2009Q3

REPORT INFORMATION
  Report Type: 
  Country: None (occurrence: None)
  Receive Date: 20090713
  Receipt Date: 20090626
  Transmission Date: 20100115
  Serious: Yes (Other)
  Sender: FDA-Public Use
  Company Number: 2009EU002564

PATIENT
  Age: 15 Year
  Sex: Female

DRUGS (4)
  1. TACROLIMUS [Suspect]
     Indication: RENAL TRANSPLANT
     Dosage: /D
  2. CYCLOSPORINE [Suspect]
     Indication: RENAL TRANSPLANT
     Dosage: /D
  3. PREDNISOLONE [Suspect]
     Indication: RENAL TRANSPLANT
     Dosage: 5 MG/KG, UID/QD;
  4. AZATHOPRINE(AZATHIOPRINE) [Suspect]
     Indication: RENAL TRANSPLANT
     Dosage: /D

REACTIONS (12)
  - BACTERIAL INFECTION [None]
  - BLINDNESS [None]
  - CEREBRAL ARTERY THROMBOSIS [None]
  - CEREBRAL INFARCTION [None]
  - CEREBRAL ISCHAEMIA [None]
  - COMMUNICATION DISORDER [None]
  - ENTEROCOCCAL SEPSIS [None]
  - ESCHERICHIA INFECTION [None]
  - HEMIPARESIS [None]
  - ILEUS [None]
  - NEUROTOXICITY [None]
  - SPEECH DISORDER [None]
